FAERS Safety Report 13823939 (Version 1)
Quarter: 2017Q3

REPORT INFORMATION
  Report Type: Spontaneous
  Country: US (occurrence: US)
  Receive Date: 20170802
  Receipt Date: 20170802
  Transmission Date: 20171127
  Serious: Yes (Other)
  Sender: FDA-Public Use
  Company Number: US-ROCHE-1968347

PATIENT
  Age: 64 Year
  Sex: Female
  Weight: 85.35 kg

DRUGS (5)
  1. ZOFRAN [Suspect]
     Active Substance: ONDANSETRON HYDROCHLORIDE
     Indication: NAUSEA
     Dosage: 1 PILL
     Route: 065
     Dates: start: 201707
  2. BENADRYL [Suspect]
     Active Substance: DIPHENHYDRAMINE HYDROCHLORIDE
     Indication: PRODUCT USED FOR UNKNOWN INDICATION
     Dosage: UNKNOWN
     Route: 065
  3. PREDNISONE. [Concomitant]
     Active Substance: PREDNISONE
     Dosage: UNKNOWN
     Route: 065
  4. RITUXAN [Suspect]
     Active Substance: RITUXIMAB
     Indication: NON-HODGKIN^S LYMPHOMA
     Route: 042
     Dates: start: 201603
  5. TYLENOL [Concomitant]
     Active Substance: ACETAMINOPHEN
     Indication: PAIN
     Dosage: YES
     Route: 065

REACTIONS (15)
  - Insomnia [Recovered/Resolved]
  - Abdominal pain upper [Unknown]
  - Weight increased [Not Recovered/Not Resolved]
  - Nasopharyngitis [Unknown]
  - Pain [Recovered/Resolved]
  - Ulcer [Unknown]
  - Decreased appetite [Not Recovered/Not Resolved]
  - Malaise [Recovered/Resolved]
  - Frustration tolerance decreased [Not Recovered/Not Resolved]
  - Hypophagia [Not Recovered/Not Resolved]
  - Haemorrhage [Recovered/Resolved]
  - Diarrhoea haemorrhagic [Recovered/Resolved]
  - Fatigue [Not Recovered/Not Resolved]
  - Influenza [Unknown]
  - Diarrhoea [Not Recovered/Not Resolved]

NARRATIVE: CASE EVENT DATE: 201610
